FAERS Safety Report 23486782 (Version 1)
Quarter: 2024Q1

REPORT INFORMATION
  Report Type: Spontaneous
  Country: CN (occurrence: CN)
  Receive Date: 20240206
  Receipt Date: 20240206
  Transmission Date: 20240410
  Serious: Yes (Hospitalization)
  Sender: FDA-Public Use
  Company Number: CN-PFIZER INC-PV202400014581

PATIENT
  Age: 69 Year
  Sex: Female
  Weight: 63 kg

DRUGS (4)
  1. EPIRUBICIN [Suspect]
     Active Substance: EPIRUBICIN
     Indication: Chemotherapy
     Dosage: 50.000 MG, 1X/DAY
     Route: 041
     Dates: start: 20240110, end: 20240111
  2. GAZYVA [Suspect]
     Active Substance: OBINUTUZUMAB
     Indication: Targeted cancer therapy
     Dosage: 1.000 G, 1X/DAY
     Route: 041
     Dates: start: 20240109, end: 20240109
  3. CYCLOPHOSPHAMIDE [Suspect]
     Active Substance: CYCLOPHOSPHAMIDE
     Indication: Chemotherapy
     Dosage: 600.000 MG, 1X/DAY
     Route: 041
     Dates: start: 20240110, end: 20240111
  4. VINCRISTINE SULFATE [Suspect]
     Active Substance: VINCRISTINE SULFATE
     Indication: Chemotherapy
     Dosage: 1.000 MG, 1X/DAY
     Route: 041
     Dates: start: 20240110, end: 20240111

REACTIONS (6)
  - White blood cell count decreased [Recovering/Resolving]
  - Neutrophil count decreased [Recovering/Resolving]
  - Haemoglobin decreased [Recovering/Resolving]
  - Platelet count decreased [Recovering/Resolving]
  - Asthenia [Recovered/Resolved]
  - Pyrexia [Recovered/Resolved]

NARRATIVE: CASE EVENT DATE: 20240116
